FAERS Safety Report 13081220 (Version 1)
Quarter: 2017Q1

REPORT INFORMATION
  Report Type: Spontaneous
  Country: ES (occurrence: ES)
  Receive Date: 20170103
  Receipt Date: 20170103
  Transmission Date: 20170428
  Serious: Yes (Other)
  Sender: FDA-Public Use
  Company Number: ES-MYLANLABS-2016M1057879

PATIENT

DRUGS (9)
  1. OMEPRAZOL RATIOPHARM [Suspect]
     Active Substance: OMEPRAZOLE
     Indication: CARDIAC FAILURE
     Dosage: 20 MG DIA
     Route: 048
     Dates: start: 20160502
  2. ELECOR [Suspect]
     Active Substance: EPLERENONE
     Indication: CARDIAC FAILURE
     Dosage: 25 MG, QD
     Route: 048
     Dates: start: 20160502
  3. ADIRO [Suspect]
     Active Substance: ASPIRIN
     Indication: PRODUCT USED FOR UNKNOWN INDICATION
     Dosage: 100 MG DIA
     Route: 048
     Dates: start: 20130501
  4. SIMVASTATINA RATIOPHARM [Suspect]
     Active Substance: SIMVASTATIN
     Indication: CARDIAC FAILURE
     Dosage: 40 MG DIA
     Route: 048
     Dates: start: 20160502
  5. HIDROCLOROTIAZIDA KERN PHARMA [Suspect]
     Active Substance: HYDROCHLOROTHIAZIDE
     Indication: CARDIAC FAILURE
     Dosage: 25 MG, QD
     Route: 048
     Dates: start: 20160502
  6. PULMICORT TURBUHALER [Suspect]
     Active Substance: BUDESONIDE
     Indication: CARDIAC FAILURE
     Dosage: 1 DOSISHA DISMINUIDO LA DOSIS:CANTIDAD/FRECUENCIA: 400DOSIS: 400 ?GFRECUENCIA: 2 DIAS
     Route: 048
     Dates: start: 20160501
  7. ENALAPRIL MYLAN 5 MG COMPRIMIDOS EFG [Suspect]
     Active Substance: ENALAPRIL
     Indication: PRODUCT USED FOR UNKNOWN INDICATION
     Dosage: 5MG 1 VEZ AL DIA
     Route: 048
     Dates: start: 20160901
  8. CARVEDILOL RATIOPHARM [Suspect]
     Active Substance: CARVEDILOL
     Indication: CARDIAC FAILURE
     Dosage: 12,50 MG AL DIA
     Route: 048
     Dates: start: 20130401
  9. ATROVENT [Suspect]
     Active Substance: IPRATROPIUM BROMIDE
     Indication: CARDIAC FAILURE
     Dosage: 40 MICROGRAMOS
     Route: 048
     Dates: start: 20160502

REACTIONS (4)
  - Muscle disorder [Not Recovered/Not Resolved]
  - Skin disorder [Not Recovered/Not Resolved]
  - Urinary tract disorder [Not Recovered/Not Resolved]
  - Dysphagia [Not Recovered/Not Resolved]

NARRATIVE: CASE EVENT DATE: 20161001
